FAERS Safety Report 24058791 (Version 2)
Quarter: 2024Q4

REPORT INFORMATION
  Report Type: Report from Study
  Country: DE (occurrence: DE)
  Receive Date: 20240708
  Receipt Date: 20241031
  Transmission Date: 20250114
  Serious: Yes (Hospitalization)
  Sender: NORDIC PHARMA
  Company Number: DE-002147023-NVSC2019DE046908

PATIENT
  Sex: Female

DRUGS (2)
  1. METHOTREXATE [Suspect]
     Active Substance: METHOTREXATE
     Indication: Product used for unknown indication
     Dosage: 10 MG, QW
     Route: 065
  2. ERELZI [Concomitant]
     Active Substance: ETANERCEPT-SZZS
     Indication: Rheumatoid arthritis
     Dosage: 50 MG, QW (BATCH NUMBER WAS UNKNOWN)
     Route: 065
     Dates: start: 201809

REACTIONS (4)
  - Osteoarthritis [Not Recovered/Not Resolved]
  - Laryngitis [Recovered/Resolved]
  - Plantar fasciitis [Unknown]
  - Alanine aminotransferase increased [Not Recovered/Not Resolved]

NARRATIVE: CASE EVENT DATE: 20191201
